FAERS Safety Report 14212523 (Version 2)
Quarter: 2017Q4

REPORT INFORMATION
  Report Type: Spontaneous
  Country: GB (occurrence: GB)
  Receive Date: 20171122
  Receipt Date: 20171201
  Transmission Date: 20180321
  Serious: Yes (Death, Other)
  Sender: FDA-Public Use
  Company Number: GB-ABBVIE-17P-167-2171271-00

PATIENT
  Age: 87 Year
  Sex: Female

DRUGS (1)
  1. EPILIM [Suspect]
     Active Substance: VALPROATE SODIUM
     Indication: PRODUCT USED FOR UNKNOWN INDICATION
     Dosage: 15 ML MORNING, 20 ML NIGHT
     Route: 065

REACTIONS (4)
  - Lower respiratory tract infection [Fatal]
  - Petit mal epilepsy [Unknown]
  - Seizure [Unknown]
  - Generalised tonic-clonic seizure [Unknown]
